FAERS Safety Report 7213416-5 (Version None)
Quarter: 2010Q4

REPORT INFORMATION
  Report Type: 
  Country: None (occurrence: None)
  Receive Date: 20101126
  Receipt Date: 20100412
  Transmission Date: 20110411
  Serious: Yes (Other)
  Sender: FDA-Public Use
  Company Number: WAES 0706USA02109

PATIENT
  Age: 73 Year
  Sex: Female

DRUGS (4)
  1. FOSAMAX [Suspect]
     Indication: OSTEOPOROSIS
     Dosage: 70/WKY/PO
     Route: 048
     Dates: start: 20060514, end: 20060809
  2. CITRACAL CAPLETS +D [Concomitant]
  3. ATENOLOL [Concomitant]
  4. LISINOPRIL [Concomitant]

REACTIONS (6)
  - DENTAL CARIES [None]
  - DYSPEPSIA [None]
  - HEADACHE [None]
  - NECK PAIN [None]
  - OSTEONECROSIS [None]
  - PAIN IN JAW [None]
